FAERS Safety Report 6618275-7 (Version None)
Quarter: 2010Q1

REPORT INFORMATION
  Report Type: 
  Country: None (occurrence: None)
  Receive Date: 20100223
  Receipt Date: 20091218
  Transmission Date: 20100710
  Serious: No
  Sender: FDA-Public Use
  Company Number: 8055106

PATIENT
  Sex: Male
  Weight: 66.6 kg

DRUGS (9)
  1. CERTOLIZUMAB PEGOL [Suspect]
     Indication: CROHN'S DISEASE
     Dosage: 400 MG SUBCUTANEOUS, 400 MG SUBCUTANEOUS, 400 MG SUBCUTANEOUS
     Route: 058
     Dates: start: 20090129, end: 20091120
  2. CERTOLIZUMAB PEGOL [Suspect]
     Indication: CROHN'S DISEASE
     Dosage: 400 MG SUBCUTANEOUS, 400 MG SUBCUTANEOUS, 400 MG SUBCUTANEOUS
     Route: 058
     Dates: start: 20081101
  3. CERTOLIZUMAB PEGOL [Suspect]
     Indication: CROHN'S DISEASE
     Dosage: 400 MG SUBCUTANEOUS, 400 MG SUBCUTANEOUS, 400 MG SUBCUTANEOUS
     Route: 058
     Dates: start: 20091218
  4. CERTOLIZUMAB PEGOL [Suspect]
  5. LORTAB [Concomitant]
  6. CLOZARIL [Concomitant]
  7. MIRALAX [Concomitant]
  8. VITAMIN B-12 [Concomitant]
  9. .. [Concomitant]

REACTIONS (2)
  - PYREXIA [None]
  - SNEEZING [None]
